FAERS Safety Report 5760427-2 (Version None)
Quarter: 2008Q2

REPORT INFORMATION
  Report Type: 
  Country: None (occurrence: None)
  Receive Date: 20080605
  Receipt Date: 20080527
  Transmission Date: 20081010
  Serious: Yes (Death, Hospitalization, Other)
  Sender: FDA-Public Use
  Company Number: US-PFIZER INC-2008045254

PATIENT
  Sex: Female

DRUGS (3)
  1. CELEBREX [Suspect]
     Indication: PAIN
     Dates: start: 19990214, end: 20020616
  2. BEXTRA [Suspect]
     Indication: PAIN
     Dates: start: 20030219, end: 20030313
  3. VIOXX [Suspect]

REACTIONS (3)
  - ARTERIOSCLEROSIS [None]
  - PULMONARY EMBOLISM [None]
  - STOMACH DISCOMFORT [None]
